FAERS Safety Report 21680112 (Version 1)
Quarter: 2022Q4

REPORT INFORMATION
  Report Type: Report from Study
  Country: US (occurrence: US)
  Receive Date: 20221205
  Receipt Date: 20221205
  Transmission Date: 20230113
  Serious: No
  Sender: FDA-Public Use
  Company Number: US-ABBVIE-4216963

PATIENT
  Sex: Male
  Weight: 68.038 kg

DRUGS (3)
  1. RINVOQ [Suspect]
     Active Substance: UPADACITINIB
     Indication: Colitis ulcerative
     Dosage: FORM STRENGTH: 30 MG
     Route: 048
  2. RINVOQ [Suspect]
     Active Substance: UPADACITINIB
     Indication: Colitis ulcerative
     Dosage: FORM STRENGTH : 45 MILLIGRAM
     Route: 048
     Dates: start: 2021
  3. ZANTAC [Concomitant]
     Active Substance: RANITIDINE HYDROCHLORIDE
     Indication: Hypersensitivity
     Route: 065

REACTIONS (3)
  - Defaecation urgency [Not Recovered/Not Resolved]
  - Drug ineffective [Not Recovered/Not Resolved]
  - Colitis ulcerative [Unknown]
